FAERS Safety Report 18931986 (Version 1)
Quarter: 2021Q1

REPORT INFORMATION
  Report Type: Spontaneous
  Country: US (occurrence: US)
  Receive Date: 20210223
  Receipt Date: 20210223
  Transmission Date: 20210420
  Serious: No
  Sender: FDA-Public Use
  Company Number: US-ROCHE-2719249

PATIENT
  Age: 32 Year
  Sex: Male

DRUGS (1)
  1. EVRYSDI [Suspect]
     Active Substance: RISDIPLAM
     Indication: SPINAL MUSCULAR ATROPHY
     Dosage: ONGOING: YES
     Route: 048
     Dates: start: 20201106

REACTIONS (2)
  - Flatulence [Recovering/Resolving]
  - Gastric disorder [Recovering/Resolving]

NARRATIVE: CASE EVENT DATE: 20201106
